FAERS Safety Report 15900914 (Version 1)
Quarter: 2019Q1

REPORT INFORMATION
  Report Type: Spontaneous
  Country: US (occurrence: US)
  Receive Date: 20190201
  Receipt Date: 20190201
  Transmission Date: 20190417
  Serious: No
  Sender: FDA-Public Use
  Company Number: PHEH2019US003916

PATIENT
  Age: 32 Year
  Sex: Female

DRUGS (1)
  1. ILARIS [Suspect]
     Active Substance: CANAKINUMAB
     Indication: HEREDITARY NEUROPATHIC AMYLOIDOSIS
     Dosage: 150 MG, UNK (EVERY 8 WEEKS)
     Route: 050

REACTIONS (2)
  - Rash [Unknown]
  - Product use in unapproved indication [Unknown]
